FAERS Safety Report 23643805 (Version 1)
Quarter: 2024Q1

REPORT INFORMATION
  Report Type: Spontaneous
  Country: CN (occurrence: CN)
  Receive Date: 20240318
  Receipt Date: 20240318
  Transmission Date: 20240410
  Serious: Yes (Life-Threatening, Hospitalization, Other)
  Sender: FDA-Public Use
  Company Number: CN-BAYER-2024A038510

PATIENT
  Age: 72 Year
  Sex: Male
  Weight: 77 kg

DRUGS (1)
  1. RIVAROXABAN [Suspect]
     Active Substance: RIVAROXABAN
     Indication: Pulmonary embolism
     Dosage: 20 MG, QD
     Route: 048
     Dates: start: 20220516, end: 20231204

REACTIONS (28)
  - Cerebellar haemorrhage [Unknown]
  - Cardiac arrest [Recovered/Resolved]
  - Brain herniation [Unknown]
  - Loss of consciousness [Unknown]
  - Delirium [Unknown]
  - Hypertension [Unknown]
  - Arteriosclerosis coronary artery [Unknown]
  - Blood pressure decreased [Unknown]
  - Fall [Unknown]
  - Lung opacity [Unknown]
  - Pulmonary mass [Unknown]
  - Renal cyst [Unknown]
  - Blood pH decreased [Unknown]
  - Blood lactic acid increased [Unknown]
  - PO2 decreased [Unknown]
  - Oxygen saturation decreased [Unknown]
  - Myoglobin blood increased [Unknown]
  - Blood glucose increased [Unknown]
  - Blood creatinine increased [Unknown]
  - Blood potassium decreased [Unknown]
  - Prothrombin time prolonged [Unknown]
  - Prothrombin level decreased [Unknown]
  - International normalised ratio increased [Unknown]
  - Fibrin D dimer increased [Unknown]
  - White blood cell count increased [Unknown]
  - Product prescribing issue [Unknown]
  - Incorrect dose administered [Unknown]
  - Inappropriate schedule of product administration [Unknown]

NARRATIVE: CASE EVENT DATE: 20220516
